FAERS Safety Report 15854469 (Version 1)
Quarter: 2019Q1

REPORT INFORMATION
  Report Type: Spontaneous
  Country: US (occurrence: US)
  Receive Date: 20190121
  Receipt Date: 20190121
  Transmission Date: 20190417
  Serious: No
  Sender: FDA-Public Use
  Company Number: None

PATIENT

DRUGS (1)
  1. ACYCLOVIR SODIUM INJECTION [Suspect]
     Active Substance: ACYCLOVIR SODIUM
     Dates: start: 20190114, end: 20190118

REACTIONS (3)
  - Product complaint [None]
  - Product preparation issue [None]
  - Product colour issue [None]

NARRATIVE: CASE EVENT DATE: 20190118
